FAERS Safety Report 6016003-X (Version None)
Quarter: 2008Q4

REPORT INFORMATION
  Report Type: 
  Country: None (occurrence: None)
  Receive Date: 20081222
  Receipt Date: 20081211
  Transmission Date: 20090506
  Serious: Yes (Death, Other)
  Sender: FDA-Public Use
  Company Number: FR-CELGENEUS-TNZFR200700042

PATIENT
  Sex: Female
  Weight: 45 kg

DRUGS (20)
  1. INNOHEP [Suspect]
     Route: 058
     Dates: start: 20070216, end: 20070216
  2. INNOHEP [Suspect]
     Indication: PULMONARY EMBOLISM
     Route: 058
     Dates: start: 20070217, end: 20070217
  3. INNOHEP [Suspect]
     Route: 058
     Dates: start: 20070218, end: 20070218
  4. INNOHEP [Suspect]
     Route: 058
     Dates: start: 20070219, end: 20070219
  5. HEPARIN [Suspect]
     Route: 058
     Dates: start: 20070214, end: 20070214
  6. HEPARIN [Suspect]
     Route: 058
     Dates: start: 20070215, end: 20070215
  7. HEPARIN [Suspect]
     Route: 058
     Dates: start: 20070218, end: 20070218
  8. HEPARIN [Suspect]
     Route: 058
     Dates: start: 20070220, end: 20070220
  9. HEPARIN [Suspect]
     Route: 058
     Dates: start: 20070221, end: 20070221
  10. HEPARIN [Suspect]
     Route: 058
     Dates: start: 20070222, end: 20070222
  11. HEPARIN [Suspect]
     Route: 058
     Dates: start: 20070223, end: 20070223
  12. HEPARIN [Suspect]
     Route: 058
     Dates: start: 20070224, end: 20070224
  13. COUMADIN [Concomitant]
     Route: 048
     Dates: start: 20070221, end: 20070223
  14. COUMADIN [Concomitant]
     Indication: PULMONARY EMBOLISM
     Route: 048
     Dates: start: 20070302, end: 20070319
  15. LASILIX [Concomitant]
     Indication: CARDIAC FAILURE
     Route: 048
     Dates: end: 20070311
  16. LASILIX [Concomitant]
     Route: 051
     Dates: start: 20070312, end: 20070312
  17. LASILIX [Concomitant]
     Route: 051
     Dates: start: 20070313, end: 20070313
  18. TANAKAN [Concomitant]
     Indication: CEREBRAL DISORDER
     Route: 048
  19. NITRODERM [Concomitant]
     Indication: CARDIAC DISORDER
     Route: 062
     Dates: start: 20070318, end: 20070318
  20. METEOSPASMYL [Concomitant]
     Indication: INTESTINAL FUNCTIONAL DISORDER
     Route: 048
     Dates: end: 20070215

REACTIONS (2)
  - HEPARIN-INDUCED THROMBOCYTOPENIA [None]
  - RESPIRATORY FAILURE [None]
